FAERS Safety Report 12502895 (Version 6)
Quarter: 2016Q3

REPORT INFORMATION
  Report Type: Report from Study
  Country: AU (occurrence: AU)
  Receive Date: 20160628
  Receipt Date: 20160912
  Transmission Date: 20161109
  Serious: Yes (Hospitalization)
  Sender: FDA-Public Use
  Company Number: AU-BRISTOL-MYERS SQUIBB COMPANY-BMS-2016-051447

PATIENT
  Age: 67 Year
  Sex: Male
  Weight: 77.7 kg

DRUGS (19)
  1. NIVOLUMAB [Suspect]
     Active Substance: NIVOLUMAB
     Dosage: 1 DF, UNK
     Route: 065
     Dates: start: 20160512, end: 20160512
  2. NIVOLUMAB [Suspect]
     Active Substance: NIVOLUMAB
     Dosage: 1 DF, UNK
     Route: 065
     Dates: start: 20160602, end: 20160602
  3. IPILIMUMAB [Suspect]
     Active Substance: IPILIMUMAB
     Dosage: 1 DF, UNK
     Route: 065
     Dates: start: 20160602, end: 20160602
  4. IPILIMUMAB [Suspect]
     Active Substance: IPILIMUMAB
     Dosage: 1 DF, UNK
     Route: 065
     Dates: start: 20160707, end: 20160707
  5. METOCLOPRAMIDE. [Concomitant]
     Active Substance: METOCLOPRAMIDE
     Indication: NAUSEA
     Dosage: 30 MG, UNK
     Route: 048
     Dates: start: 20160609, end: 20160609
  6. DIPROSONE                          /00008502/ [Concomitant]
     Active Substance: BETAMETHASONE SODIUM PHOSPHATE
     Indication: RASH
     Dosage: 1 DF, UNK
     Route: 061
     Dates: start: 20160602, end: 20160624
  7. PARACETAMOL [Concomitant]
     Active Substance: ACETAMINOPHEN
     Indication: PAIN
     Dosage: 4000 MG, UNK
     Route: 048
     Dates: start: 2016
  8. ZOLOFT [Concomitant]
     Active Substance: SERTRALINE HYDROCHLORIDE
     Indication: POST-TRAUMATIC STRESS DISORDER
     Dosage: 75 MG, UNK
     Route: 048
     Dates: start: 1996
  9. PERIACTIN [Concomitant]
     Active Substance: CYPROHEPTADINE HYDROCHLORIDE
     Indication: RASH
     Dosage: 4 MG, UNK
     Route: 048
     Dates: start: 20160620
  10. NIVOLUMAB [Suspect]
     Active Substance: NIVOLUMAB
     Dosage: 1 DF, UNK
     Route: 065
     Dates: start: 20160707, end: 20160707
  11. IPILIMUMAB [Suspect]
     Active Substance: IPILIMUMAB
     Indication: MALIGNANT MELANOMA
     Dosage: 1 DF, UNK
     Route: 065
     Dates: start: 20160421, end: 20160421
  12. EUREX [Concomitant]
     Indication: RASH
     Dosage: 10 %, UNK
     Route: 061
     Dates: start: 20160520, end: 20160624
  13. EUREX [Concomitant]
     Indication: RASH
  14. PERIACTIN [Concomitant]
     Active Substance: CYPROHEPTADINE HYDROCHLORIDE
     Indication: RASH
     Dosage: 4 MG, QD
     Route: 048
     Dates: start: 20160602, end: 20160620
  15. NIVOLUMAB [Suspect]
     Active Substance: NIVOLUMAB
     Indication: MALIGNANT MELANOMA
     Dosage: 1 DF, UNK
     Route: 065
     Dates: start: 20160421, end: 20160421
  16. IPILIMUMAB [Suspect]
     Active Substance: IPILIMUMAB
     Dosage: 1 DF, UNK
     Route: 065
     Dates: start: 20160512, end: 20160512
  17. VALIUM [Concomitant]
     Active Substance: DIAZEPAM
     Indication: ANXIETY
     Dosage: 2.5 MG, UNK
     Route: 048
     Dates: start: 20160520
  18. PERIACTIN [Concomitant]
     Active Substance: CYPROHEPTADINE HYDROCHLORIDE
     Indication: RASH
     Dosage: 4 MG, QD
     Route: 048
     Dates: start: 20160602
  19. OXYCODONE HYDROCHLORIDE. [Concomitant]
     Active Substance: OXYCODONE HYDROCHLORIDE
     Indication: PAIN
     Dosage: 5 MG, UNK
     Route: 048
     Dates: start: 2016

REACTIONS (1)
  - Arthritis [Recovered/Resolved]

NARRATIVE: CASE EVENT DATE: 20160620
